FAERS Safety Report 9814058 (Version 1)
Quarter: 2014Q1

REPORT INFORMATION
  Report Type: Spontaneous
  Country: US (occurrence: US)
  Receive Date: 20140113
  Receipt Date: 20140113
  Transmission Date: 20141002
  Serious: No
  Sender: FDA-Public Use
  Company Number: US-ASTELLAS-2013US011281

PATIENT
  Age: 64 Year
  Sex: Female
  Weight: 58 kg

DRUGS (1)
  1. MYRBETRIQ [Suspect]
     Indication: POLLAKIURIA
     Dosage: 25 MG, UID/QD
     Route: 048
     Dates: start: 201310

REACTIONS (4)
  - Drug ineffective [Unknown]
  - Ear pain [Not Recovered/Not Resolved]
  - Pollakiuria [Unknown]
  - Oropharyngeal pain [Not Recovered/Not Resolved]
